FAERS Safety Report 4514441-5 (Version None)
Quarter: 2004Q4

REPORT INFORMATION
  Report Type: 
  Country: None (occurrence: None)
  Receive Date: 20040928
  Receipt Date: 20040602
  Transmission Date: 20050328
  Serious: No
  Sender: FDA-Public Use
  Company Number: 04P-163-0262653-00

PATIENT
  Age: 46 Year
  Sex: Female
  Weight: 164.2021 kg

DRUGS (7)
  1. HUMIRA [Suspect]
     Indication: RHEUMATOID ARTHRITIS
     Dosage: 1 IN 1 WK, SUBCUTANEOUS
     Route: 058
     Dates: start: 20031229
  2. METHOTREXATE SODIUM [Concomitant]
  3. HYDROCHLOROQUINE PHOSPHATE [Concomitant]
  4. PREDNISONE [Concomitant]
  5. FOLIC ACID [Concomitant]
  6. HYOSCYAMINE SULFATE [Concomitant]
  7. BUCINDOLOL HYDROCHLORIDE [Concomitant]

REACTIONS (5)
  - INJECTION SITE BURNING [None]
  - INJECTION SITE ERYTHEMA [None]
  - INJECTION SITE HAEMORRHAGE [None]
  - INJECTION SITE NODULE [None]
  - INJECTION SITE WARMTH [None]
